FAERS Safety Report 22041823 (Version 4)
Quarter: 2023Q2

REPORT INFORMATION
  Report Type: Spontaneous
  Country: JP (occurrence: JP)
  Receive Date: 20230227
  Receipt Date: 20230428
  Transmission Date: 20230722
  Serious: Yes (Death, Hospitalization)
  Sender: FDA-Public Use
  Company Number: JP-JNJFOC-20230257558

PATIENT
  Age: 7 Decade
  Sex: Male

DRUGS (1)
  1. OPSUMIT [Suspect]
     Active Substance: MACITENTAN
     Indication: Pulmonary hypertension
     Dosage: DOSE UNKNOWN
     Route: 048

REACTIONS (3)
  - Death [Fatal]
  - Sepsis [Recovered/Resolved]
  - Large intestine infection [Unknown]

NARRATIVE: CASE EVENT DATE: 20211201
